FAERS Safety Report 9268724 (Version 2)
Quarter: 2013Q2

REPORT INFORMATION
  Report Type: Report from Study
  Country: US (occurrence: US)
  Receive Date: 20130502
  Receipt Date: 20130605
  Transmission Date: 20140414
  Serious: No
  Sender: FDA-Public Use
  Company Number: US-ALEXION-A201300246

PATIENT
  Age: 11 Year
  Sex: Female
  Weight: 53.97 kg

DRUGS (6)
  1. SOLIRIS [Suspect]
     Indication: HAEMOLYTIC URAEMIC SYNDROME
     Dosage: UNK, Q2W
     Route: 042
  2. PREVACID [Concomitant]
     Dosage: 30 MG, QD
  3. PENICILLIN [Concomitant]
     Dosage: 250 MG, BID
  4. ZYRTEC [Concomitant]
     Dosage: 10 MG, QD
  5. VITAMIN D [Concomitant]
     Dosage: 2000 UNITS, QD
  6. COLACE [Concomitant]
     Dosage: 100 MG, PRN

REACTIONS (14)
  - Streptococcal infection [Recovered/Resolved]
  - Blood lactate dehydrogenase increased [Unknown]
  - Lipase increased [Unknown]
  - Erythema of eyelid [Unknown]
  - Periorbital oedema [Unknown]
  - Condition aggravated [Unknown]
  - Diarrhoea [Recovered/Resolved]
  - Fatigue [Unknown]
  - Urinary tract infection [Unknown]
  - Sinusitis [Not Recovered/Not Resolved]
  - Urticaria [Unknown]
  - Abdominal pain [Unknown]
  - Constipation [Unknown]
  - Headache [Not Recovered/Not Resolved]
